FAERS Safety Report 15093509 (Version 1)
Quarter: 2018Q2

REPORT INFORMATION
  Report Type: Report from Study
  Country: AU (occurrence: AU)
  Receive Date: 20180629
  Receipt Date: 20180629
  Transmission Date: 20180711
  Serious: Yes (Hospitalization)
  Sender: FDA-Public Use
  Company Number: AU-PFIZER INC-2018221164

PATIENT
  Age: 20 Month
  Sex: Male
  Weight: 11.4 kg

DRUGS (11)
  1. FLUTICASONE PROPIONATE (GLUCOCORTICOID) [Concomitant]
     Active Substance: FLUTICASONE PROPIONATE
     Indication: CYSTIC FIBROSIS LUNG
     Dosage: 1 PUFF, 1X/DAY, POST PHYSIO
     Route: 055
     Dates: start: 20170624
  2. BLINDED AZITHROMYCIN [Suspect]
     Active Substance: AZITHROMYCIN ANHYDROUS
     Dosage: 3X WEEK MON, WED, FRI
     Dates: start: 20170222
  3. SALBUTAMOL [Concomitant]
     Active Substance: ALBUTEROL
     Indication: BRONCHIECTASIS
     Dosage: 4 PUFFS, 2X/DAY PRE PHYSIO
     Route: 055
     Dates: start: 20170624
  4. DORNASE ALFA RECOMBINANT [Concomitant]
     Indication: CYSTIC FIBROSIS LUNG
     Dosage: 2.5 MG, 1X/DAY
     Route: 055
     Dates: start: 20180112
  5. BLINDED AZITHROMYCIN [Suspect]
     Active Substance: AZITHROMYCIN ANHYDROUS
     Dosage: 3X WEEK MON, WED, FRI
     Dates: start: 20170222
  6. BLINDED PLACEBO [Suspect]
     Active Substance: INVESTIGATIONAL PRODUCT
     Dosage: 3X WEEK MON, WED, FRI
     Dates: start: 20170222
  7. ZINC OXIDE. [Concomitant]
     Active Substance: ZINC OXIDE
     Indication: DERMATITIS DIAPER
     Dosage: SMEAR TOPICALLY AS NEEDED
     Route: 061
     Dates: start: 20161020
  8. VITABDECK [Concomitant]
     Indication: VITAMIN SUPPLEMENTATION
     Dosage: 1/2 CAPSULE, 1X/DAY
     Route: 048
     Dates: start: 20161025
  9. BLINDED PLACEBO [Suspect]
     Active Substance: INVESTIGATIONAL PRODUCT
     Dosage: 3X WEEK MON, WED, FRI
     Dates: start: 20170222
  10. SALT [Concomitant]
     Active Substance: SODIUM CHLORIDE
     Indication: SUPPLEMENTATION THERAPY
     Dosage: 1 TEASPOON, 1X/DAY
     Route: 048
     Dates: start: 20161025
  11. PANCRELIPASE 20000 [Concomitant]
     Indication: PANCREATIC FAILURE
     Dosage: 10000 UNITS, AS NEEDED WITH FOOD
     Dates: start: 20180111

REACTIONS (1)
  - Pseudomonas infection [Recovering/Resolving]

NARRATIVE: CASE EVENT DATE: 20180529
